FAERS Safety Report 21482441 (Version 3)
Quarter: 2022Q4

REPORT INFORMATION
  Report Type: Spontaneous
  Country: CH (occurrence: CH)
  Receive Date: 20221020
  Receipt Date: 20221114
  Transmission Date: 20230112
  Serious: Yes (Death, Other)
  Sender: FDA-Public Use
  Company Number: CH-BoehringerIngelheim-2022-BI-193505

PATIENT
  Sex: Female

DRUGS (1)
  1. OFEV [Suspect]
     Active Substance: NINTEDANIB
     Indication: Product used for unknown indication
     Dosage: -AUG-2022

REACTIONS (3)
  - Death [Fatal]
  - Pyrexia [Unknown]
  - Thrombocytopenia [Not Recovered/Not Resolved]
